FAERS Safety Report 5856809-0 (Version None)
Quarter: 2008Q3

REPORT INFORMATION
  Report Type: 
  Country: None (occurrence: None)
  Receive Date: 20080825
  Receipt Date: 20080813
  Transmission Date: 20090109
  Serious: Yes (Disabling, Other)
  Sender: FDA-Public Use
  Company Number: JP-PFIZER INC-2008067528

PATIENT
  Sex: Female
  Weight: 51 kg

DRUGS (10)
  1. CAMPTOSAR [Suspect]
     Indication: RECTAL CANCER
     Dosage: DAILY DOSE:216MG-FREQ:DAILY
     Dates: start: 20080804, end: 20080804
  2. CALCIUM FOLINATE [Suspect]
     Indication: RECTAL CANCER
     Dosage: DAILY DOSE:288MG-FREQ:DAILY
     Dates: start: 20080804, end: 20080804
  3. FLUOROURACIL [Suspect]
     Indication: RECTAL CANCER
     Dosage: TEXT:576 MG, 3456 MG
     Dates: start: 20080804, end: 20080804
  4. NAUZELIN [Concomitant]
     Dates: start: 20080805, end: 20080806
  5. KYTRIL [Concomitant]
     Dates: start: 20080805, end: 20080806
  6. DECADRON SRC [Concomitant]
     Dates: start: 20080805, end: 20080806
  7. PRIMPERAN INJ [Concomitant]
     Dates: start: 20080805, end: 20080806
  8. ATARAX [Concomitant]
     Dates: start: 20080805, end: 20080805
  9. AMINOLEBAN [Concomitant]
     Dates: start: 20080806, end: 20080806
  10. MONILAC [Concomitant]
     Dates: start: 20080806, end: 20080806

REACTIONS (7)
  - ANOREXIA [None]
  - DEPRESSED LEVEL OF CONSCIOUSNESS [None]
  - FATIGUE [None]
  - NAUSEA [None]
  - RENAL IMPAIRMENT [None]
  - URINE OUTPUT DECREASED [None]
  - VOMITING [None]
